FAERS Safety Report 23812134 (Version 1)
Quarter: 2024Q2

REPORT INFORMATION
  Report Type: Spontaneous
  Country: US (occurrence: US)
  Receive Date: 20240503
  Receipt Date: 20240503
  Transmission Date: 20240716
  Serious: No
  Sender: FDA-Public Use
  Company Number: US-UCBSA-2023030263

PATIENT
  Sex: Female
  Weight: 88.435 kg

DRUGS (1)
  1. CIMZIA [Suspect]
     Active Substance: CERTOLIZUMAB PEGOL
     Indication: Rheumatoid arthritis
     Dosage: 400 MILLIGRAM (2 SYRINGES) DIVIDED INTO 2 SIDES IN THE ABDOMEN OR THIGH EVERY 4 WEEKS AS DIRECTED
     Route: 058
     Dates: start: 202212

REACTIONS (4)
  - Anaemia [Unknown]
  - Product dose omission issue [Unknown]
  - Therapy interrupted [Unknown]
  - Product availability issue [Unknown]

NARRATIVE: CASE EVENT DATE: 20230101
